FAERS Safety Report 9808833 (Version 1)
Quarter: 2014Q1

REPORT INFORMATION
  Report Type: Spontaneous
  Country: US (occurrence: US)
  Receive Date: 20140110
  Receipt Date: 20140110
  Transmission Date: 20141002
  Serious: Yes (Death)
  Sender: FDA-Public Use
  Company Number: US-PFIZER INC-2014007463

PATIENT
  Age: 59 Year
  Sex: Female

DRUGS (6)
  1. GABAPENTIN [Suspect]
     Dosage: UNK
     Route: 048
  2. METHADONE [Suspect]
     Dosage: UNK
  3. AMPHETAMINE [Suspect]
     Dosage: UNK
  4. LORAZEPAM [Suspect]
     Dosage: UNK
  5. METOPROLOL [Suspect]
     Dosage: UNK
  6. QUETIAPINE [Suspect]
     Dosage: UNK

REACTIONS (3)
  - Completed suicide [Fatal]
  - Cardiac arrest [Fatal]
  - Respiratory arrest [Fatal]
